FAERS Safety Report 18961216 (Version 5)
Quarter: 2023Q2

REPORT INFORMATION
  Report Type: Report from Study
  Country: US (occurrence: US)
  Receive Date: 20210302
  Receipt Date: 20230627
  Transmission Date: 20230721
  Serious: Yes (Other)
  Sender: FDA-Public Use
  Company Number: NVSC2021US037592

PATIENT
  Sex: Female

DRUGS (2)
  1. GLATOPA [Suspect]
     Active Substance: GLATIRAMER ACETATE
     Indication: Multiple sclerosis
     Dosage: 40 MG
     Route: 058
  2. GLATOPA [Suspect]
     Active Substance: GLATIRAMER ACETATE
     Dosage: 40 MG
     Route: 065

REACTIONS (8)
  - Cataract [Unknown]
  - Injection site pruritus [Recovering/Resolving]
  - Urticaria [Unknown]
  - Injection site erythema [Recovering/Resolving]
  - Incorrect dose administered [Unknown]
  - Device defective [Unknown]
  - Injury associated with device [Unknown]
  - Needle issue [Unknown]
